FAERS Safety Report 15253598 (Version 2)
Quarter: 2018Q4

REPORT INFORMATION
  Report Type: Report from Study
  Country: None (occurrence: PT)
  Receive Date: 20180808
  Receipt Date: 20181210
  Transmission Date: 20190204
  Serious: Yes (Hospitalization, Other)
  Sender: FDA-Public Use
  Company Number: PT-ABBVIE-18K-130-2441526-00

PATIENT
  Age: 63 Year
  Sex: Male
  Weight: 101 kg

DRUGS (1)
  1. HUMIRA [Suspect]
     Active Substance: ADALIMUMAB
     Indication: PSORIATIC ARTHROPATHY
     Route: 058
     Dates: start: 20180108, end: 20180507

REACTIONS (4)
  - Cerebrospinal fluid leakage [Recovered/Resolved]
  - Cerebrospinal fistula [Unknown]
  - Fistula discharge [Recovered/Resolved]
  - Cerebrospinal fluid leakage [Unknown]

NARRATIVE: CASE EVENT DATE: 2018
